FAERS Safety Report 8548926-1 (Version None)
Quarter: 2012Q3

REPORT INFORMATION
  Report Type: 
  Country: None (occurrence: None)
  Receive Date: 20120730
  Receipt Date: 20120727
  Transmission Date: 20120928
  Serious: Yes (Death, Hospitalization)
  Sender: FDA-Public Use
  Company Number: PHFR2012IE001376

PATIENT
  Sex: Female

DRUGS (10)
  1. MORPHINE SULFATE [Concomitant]
     Dosage: 12.5 MG, DAILY
     Route: 042
  2. ANXICALM [Concomitant]
     Indication: CARDIAC FAILURE CONGESTIVE
     Dosage: 2 MG
     Route: 048
  3. PIPERACILLIN AND TAZOBACTAM [Concomitant]
     Dosage: 13.5 MG, DAILY
     Route: 042
  4. CYCLIZINE [Concomitant]
     Dosage: 50 MG, DAILY
     Route: 042
  5. HYDROCORTISONE [Concomitant]
  6. CLOZARIL [Suspect]
     Indication: SCHIZOPHRENIA
     Dosage: 400 MG, DAILY
     Route: 048
     Dates: start: 20101207
  7. HYOSCINE HBR HYT [Concomitant]
     Dosage: 800 MG, DAILY
     Route: 042
  8. CLOZARIL [Suspect]
     Dosage: 110 MG
     Route: 048
     Dates: end: 20120117
  9. CALCICHEW D3 [Concomitant]
     Dosage: UNK UKN, UNK
  10. MONOMAX [Concomitant]
     Indication: TYPE 2 DIABETES MELLITUS
     Dosage: 30 U
     Route: 058

REACTIONS (8)
  - GASTROINTESTINAL INFECTION [None]
  - INTESTINAL PERFORATION [None]
  - SEPSIS [None]
  - INTESTINAL OBSTRUCTION [None]
  - ABDOMINAL PAIN [None]
  - GENERAL PHYSICAL HEALTH DETERIORATION [None]
  - MALAISE [None]
  - CLOSTRIDIAL INFECTION [None]
